FAERS Safety Report 25738793 (Version 2)
Quarter: 2025Q3

REPORT INFORMATION
  Report Type: Spontaneous
  Country: TR (occurrence: TR)
  Receive Date: 20250829
  Receipt Date: 20250909
  Transmission Date: 20251021
  Serious: Yes (Other)
  Sender: ALEXION PHARMACEUTICALS
  Company Number: TR-ASTRAZENECA-202508TUR021513TR

PATIENT
  Age: 47 Year
  Sex: Male

DRUGS (2)
  1. FASENRA [Suspect]
     Active Substance: BENRALIZUMAB
     Indication: Asthma
     Dosage: UNK, Q4W
  2. FASENRA [Suspect]
     Active Substance: BENRALIZUMAB
     Dosage: UNK, Q8W

REACTIONS (1)
  - Febrile neutropenia [Unknown]
